FAERS Safety Report 12525529 (Version 2)
Quarter: 2017Q2

REPORT INFORMATION
  Report Type: Report from Study
  Country: US (occurrence: US)
  Receive Date: 20160704
  Receipt Date: 20170619
  Transmission Date: 20170830
  Serious: Yes (Other)
  Sender: FDA-Public Use
  Company Number: PHEH2016US016325

PATIENT
  Sex: Male

DRUGS (1)
  1. GLEEVEC [Suspect]
     Active Substance: IMATINIB MESYLATE
     Indication: PRODUCT USED FOR UNKNOWN INDICATION
     Dosage: UNK, QOD
     Route: 065

REACTIONS (5)
  - Blast cell count increased [Unknown]
  - Nausea [Unknown]
  - Heart rate irregular [Unknown]
  - Lung neoplasm malignant [Unknown]
  - Fatigue [Unknown]
